FAERS Safety Report 12695704 (Version 2)
Quarter: 2016Q3

REPORT INFORMATION
  Report Type: Spontaneous
  Country: US (occurrence: US)
  Receive Date: 20160829
  Receipt Date: 20160907
  Transmission Date: 20161109
  Serious: No
  Sender: FDA-Public Use
  Company Number: US-SHIRE-US201611204

PATIENT
  Sex: Female

DRUGS (1)
  1. VYVANSE [Suspect]
     Active Substance: LISDEXAMFETAMINE DIMESYLATE
     Indication: WEIGHT CONTROL
     Dosage: 50 MG, UNKNOWN
     Route: 048

REACTIONS (4)
  - Product quality issue [Unknown]
  - Adverse event [Unknown]
  - Feeling abnormal [Unknown]
  - Product use issue [Unknown]
